FAERS Safety Report 5087570-8 (Version None)
Quarter: 2006Q3

REPORT INFORMATION
  Report Type: 
  Country: None (occurrence: None)
  Receive Date: 20060824
  Receipt Date: 20060816
  Transmission Date: 20061208
  Serious: Yes (Death, Other)
  Sender: FDA-Public Use
  Company Number: PHBS2006FR12378

PATIENT
  Age: 14 Year
  Sex: Male

DRUGS (3)
  1. CYCLOPHOSPHAMIDE [Concomitant]
     Indication: CORD BLOOD TRANSPLANT THERAPY
  2. BUSULFAN [Concomitant]
     Indication: CORD BLOOD TRANSPLANT THERAPY
  3. CYCLOSPORINE [Suspect]
     Indication: CORD BLOOD TRANSPLANT THERAPY

REACTIONS (11)
  - BLOOD CREATININE INCREASED [None]
  - CREATININE RENAL CLEARANCE DECREASED [None]
  - CYSTITIS HAEMORRHAGIC [None]
  - KIDNEY FIBROSIS [None]
  - MULTI-ORGAN FAILURE [None]
  - POLYOMAVIRUS-ASSOCIATED NEPHROPATHY [None]
  - PYREXIA [None]
  - RENAL FAILURE [None]
  - RENAL IMPAIRMENT [None]
  - URETERIC DILATATION [None]
  - URINARY BLADDER HAEMORRHAGE [None]
